FAERS Safety Report 24293216 (Version 1)
Quarter: 2024Q3

REPORT INFORMATION
  Report Type: Spontaneous
  Country: US (occurrence: None)
  Receive Date: 20240906
  Receipt Date: 20240906
  Transmission Date: 20241016
  Serious: No
  Sender: DOMPE FARMACEUTICI
  Company Number: US-FARMAPROD-202312-3567

PATIENT
  Age: 49 Year
  Sex: Male

DRUGS (19)
  1. OXERVATE [Suspect]
     Active Substance: CENEGERMIN-BKBJ
     Indication: Neurotrophic keratopathy
     Route: 047
     Dates: start: 20231127, end: 20240124
  2. OXERVATE [Suspect]
     Active Substance: CENEGERMIN-BKBJ
  3. OXERVATE [Suspect]
     Active Substance: CENEGERMIN-BKBJ
  4. CYCLOBENZAPRINE HYDROCHLORIDE [Concomitant]
     Active Substance: CYCLOBENZAPRINE HYDROCHLORIDE
  5. PRAVASTATIN SODIUM [Concomitant]
     Active Substance: PRAVASTATIN SODIUM
  6. DOXEPIN HYDROCHLORIDE [Concomitant]
     Active Substance: DOXEPIN HYDROCHLORIDE
  7. ALLOPURINOL [Concomitant]
     Active Substance: ALLOPURINOL
  8. METOPROLOL SUCCINATE [Concomitant]
     Active Substance: METOPROLOL SUCCINATE
  9. URSODIOL [Concomitant]
     Active Substance: URSODIOL
  10. HYDROCHLOROTHIAZIDE [Concomitant]
     Active Substance: HYDROCHLOROTHIAZIDE
  11. AMLODIPINE BESYLATE [Concomitant]
     Active Substance: AMLODIPINE BESYLATE
  12. FINASTERIDE [Concomitant]
     Active Substance: FINASTERIDE
  13. OMEPRAZOLE [Concomitant]
     Active Substance: OMEPRAZOLE
  14. TEARS LUBRICANT EYE [Concomitant]
  15. REFRESH RELIEVA PF [Concomitant]
     Active Substance: CARBOXYMETHYLCELLULOSE SODIUM\GLYCERIN
     Dosage: 0.5%-0.9%
  16. THERATEARS [Concomitant]
     Active Substance: CARBOXYMETHYLCELLULOSE SODIUM
  17. IVIZIA [Concomitant]
     Active Substance: POVIDONE
  18. CLONAZEPAM [Concomitant]
     Active Substance: CLONAZEPAM
  19. DILTIAZEM [Concomitant]
     Active Substance: DILTIAZEM

REACTIONS (8)
  - Asthenopia [Unknown]
  - Eye pain [Not Recovered/Not Resolved]
  - Ocular hyperaemia [Unknown]
  - Device use issue [Unknown]
  - Periorbital swelling [Unknown]
  - Periorbital pain [Unknown]
  - Vision blurred [Unknown]
  - Superficial injury of eye [Not Recovered/Not Resolved]

NARRATIVE: CASE EVENT DATE: 20231129
